FAERS Safety Report 8391212-3 (Version None)
Quarter: 2012Q2

REPORT INFORMATION
  Report Type: 
  Country: None (occurrence: None)
  Receive Date: 20120529
  Receipt Date: 20120524
  Transmission Date: 20120825
  Serious: Yes (Hospitalization, Other)
  Sender: FDA-Public Use
  Company Number: US-JNJFOC-20070205112

PATIENT
  Sex: Female

DRUGS (2)
  1. RISPERIDONE [Suspect]
     Indication: SCHIZOPHRENIA
     Route: 065
  2. ZYPREXA [Suspect]
     Indication: SCHIZOPHRENIA

REACTIONS (3)
  - DEHYDRATION [None]
  - TYPE 2 DIABETES MELLITUS [None]
  - DIABETIC NEUROPATHY [None]
